FAERS Safety Report 9376156 (Version 1)
Quarter: 2013Q2

REPORT INFORMATION
  Report Type: Report from Study
  Country: US (occurrence: US)
  Receive Date: 20130630
  Receipt Date: 20130630
  Transmission Date: 20140414
  Serious: Yes (Death, Hospitalization, Other)
  Sender: FDA-Public Use
  Company Number: US-TEVA-415271USA

PATIENT
  Age: 64 Year
  Sex: Female
  Weight: 56.7 kg

DRUGS (6)
  1. DAUNORUBICIN [Suspect]
     Indication: ACUTE MYELOID LEUKAEMIA
     Dates: start: 20130605
  2. DAUNORUBICIN [Suspect]
     Dosage: IV PUSH ON DAYS 1-3
     Route: 042
     Dates: start: 20130531
  3. CYTARABINE [Suspect]
     Indication: ACUTE MYELOID LEUKAEMIA
     Dates: start: 20130611
  4. CYTARABINE [Suspect]
     Dosage: 100 MG/M2 DAILY; OVER 24 HOURS ON DAYS 1-7
     Route: 042
     Dates: start: 20130531
  5. DECITABINE [Suspect]
     Indication: ACUTE MYELOID LEUKAEMIA
     Dates: start: 20130604
  6. DECITABINE [Suspect]
     Dosage: OVER 1 HOUR ON DAYS -5 TO -1
     Route: 042
     Dates: start: 20130531

REACTIONS (3)
  - Multi-organ failure [Fatal]
  - Lung infection [Unknown]
  - Febrile neutropenia [Unknown]
